FAERS Safety Report 20015528 (Version 1)
Quarter: 2021Q4

REPORT INFORMATION
  Report Type: Spontaneous
  Country: US (occurrence: None)
  Receive Date: 20211029
  Receipt Date: 20211029
  Transmission Date: 20220303
  Serious: Yes (Hospitalization)
  Sender: FDA-Public Use
  Company Number: None

PATIENT
  Age: 74 Year
  Sex: Female

DRUGS (3)
  1. ESBRIET [Suspect]
     Active Substance: PIRFENIDONE
     Indication: Idiopathic pulmonary fibrosis
     Dosage: FREQUENCY : TWICE A DAY;?
     Route: 048
     Dates: start: 20190130
  2. ESBRIET [Suspect]
     Active Substance: PIRFENIDONE
     Dosage: FREQUENCY : TWICE A WEEK;?
     Route: 048
  3. PREDNISONE [Concomitant]
     Active Substance: PREDNISONE

REACTIONS (5)
  - Bronchitis [None]
  - Pneumonia [None]
  - Dry mouth [None]
  - Insomnia [None]
  - Decreased appetite [None]

NARRATIVE: CASE EVENT DATE: 20211029
